FAERS Safety Report 7587525-5 (Version None)
Quarter: 2011Q3

REPORT INFORMATION
  Report Type: 
  Country: None (occurrence: None)
  Receive Date: 20110704
  Receipt Date: 20110620
  Transmission Date: 20111222
  Serious: Yes (Other)
  Sender: FDA-Public Use
  Company Number: PHHY2011DE55175

PATIENT
  Sex: Female
  Weight: 68 kg

DRUGS (4)
  1. CALCIUM CARBONATE [Concomitant]
     Indication: OSTEOPOROSIS
     Dosage: 500 BID
  2. VITAMIN D [Concomitant]
     Indication: OSTEOPOROSIS
     Dosage: 20.000IU/WEEK
  3. PREDNISONE [Concomitant]
     Indication: ASTHMA
     Dosage: UNK
     Route: 048
     Dates: start: 20080101
  4. ZOLEDRONIC ACID [Suspect]
     Indication: OSTEOPOROSIS
     Dosage: 5 MG ONCE YEARLY
     Route: 042
     Dates: start: 20100531, end: 20100531

REACTIONS (3)
  - FOOT FRACTURE [None]
  - RIB FRACTURE [None]
  - DRUG INEFFECTIVE [None]
